FAERS Safety Report 24096023 (Version 1)
Quarter: 2024Q3

REPORT INFORMATION
  Report Type: Spontaneous
  Country: US (occurrence: US)
  Receive Date: 20240716
  Receipt Date: 20240716
  Transmission Date: 20241017
  Serious: No
  Sender: SANOFI AVENTIS
  Company Number: US-SANOFI-02130215

PATIENT
  Age: 72 Year
  Sex: Female

DRUGS (1)
  1. TOUJEO MAX [Suspect]
     Active Substance: INSULIN GLARGINE
     Indication: Type 2 diabetes mellitus
     Dosage: BID; 56 UNITS IN THE MORNING AND 10 UNITS AT NIGHT

REACTIONS (4)
  - Gait disturbance [Unknown]
  - Cough [Unknown]
  - Dry throat [Unknown]
  - Off label use [Unknown]
